FAERS Safety Report 6628306-6 (Version None)
Quarter: 2010Q1

REPORT INFORMATION
  Report Type: 
  Country: None (occurrence: None)
  Receive Date: 20100311
  Receipt Date: 20100303
  Transmission Date: 20100710
  Serious: Yes (Other)
  Sender: FDA-Public Use
  Company Number: US-ROCHE-685052

PATIENT
  Sex: Female
  Weight: 56.7 kg

DRUGS (5)
  1. BONIVA [Suspect]
     Indication: OSTEOPOROSIS
     Route: 048
     Dates: start: 20081201, end: 20090701
  2. SIMVASTATIN [Concomitant]
     Dosage: DOSE: 40 ; DAILY
     Route: 048
     Dates: start: 20080601
  3. LEVOXYL [Concomitant]
     Indication: HYPOTHYROIDISM
     Dosage: DOSE: 0.05; DAILY; START DATE: YEARS
     Route: 048
  4. HYDROCHLOROTHIAZIDE [Concomitant]
     Indication: HYPERTENSION
     Dosage: DOSE: 25; DAILY ; START DATE: YEARS
     Route: 048
  5. LISINOPRIL [Concomitant]
     Indication: HYPERTENSION
     Dosage: DOSE: 20; DAILY; YEARS
     Route: 048

REACTIONS (3)
  - BONE PAIN [None]
  - MONOPLEGIA [None]
  - WRONG TECHNIQUE IN DRUG USAGE PROCESS [None]
